FAERS Safety Report 10761223 (Version 1)
Quarter: 2015Q1

REPORT INFORMATION
  Report Type: Spontaneous
  Country: US (occurrence: None)
  Receive Date: 20150203
  Receipt Date: 20150203
  Transmission Date: 20150721
  Serious: Yes (Other)
  Sender: FDA-Public Use
  Company Number: None

PATIENT
  Age: 53 Year
  Sex: Female
  Weight: 65.77 kg

DRUGS (1)
  1. PEGASYS [Suspect]
     Active Substance: PEGINTERFERON ALFA-2A
     Indication: HEPATITIS C
     Dosage: STRENGTH: 180MCG, DOSE FORM: INJECTABLE, ROUTE: SUBCUTANEOUS 057, FREQUENCY: EVERY WEEK
     Route: 058
     Dates: start: 20150122

REACTIONS (3)
  - Nausea [None]
  - Vomiting [None]
  - Pruritus generalised [None]

NARRATIVE: CASE EVENT DATE: 20150202
